FAERS Safety Report 8572050-5 (Version None)
Quarter: 2012Q3

REPORT INFORMATION
  Report Type: 
  Country: None (occurrence: None)
  Receive Date: 20120724
  Receipt Date: 20120711
  Transmission Date: 20120928
  Serious: Yes (Other)
  Sender: FDA-Public Use
  Company Number: 2012P1050147

PATIENT
  Age: 6 Year
  Sex: Female

DRUGS (1)
  1. LEVETIRACETAM [Suspect]
     Indication: PARTIAL SEIZURES
     Dosage: 15 MG/KG;QD 53 MG/KG;QD

REACTIONS (7)
  - HEADACHE [None]
  - AGGRESSION [None]
  - AUTISM [None]
  - CLUMSINESS [None]
  - VOMITING [None]
  - MOTOR DYSFUNCTION [None]
  - FALL [None]
